FAERS Safety Report 21672497 (Version 1)
Quarter: 2022Q4

REPORT INFORMATION
  Report Type: Spontaneous
  Country: US (occurrence: US)
  Receive Date: 20221202
  Receipt Date: 20221202
  Transmission Date: 20230113
  Serious: No
  Sender: FDA-Public Use
  Company Number: US-LUPIN PHARMACEUTICALS INC.-2022-13641

PATIENT

DRUGS (1)
  1. SOLOSEC [Suspect]
     Active Substance: SECNIDAZOLE
     Indication: Bacterial vaginosis
     Dosage: 2 GRAM, SINGLE
     Route: 048
     Dates: start: 20221109

REACTIONS (4)
  - Wrong technique in product usage process [Unknown]
  - Alcohol interaction [Unknown]
  - Vomiting [Unknown]
  - Nausea [Unknown]
